FAERS Safety Report 25323269 (Version 2)
Quarter: 2025Q3

REPORT INFORMATION
  Report Type: Spontaneous
  Country: US (occurrence: US)
  Receive Date: 20250516
  Receipt Date: 20250731
  Transmission Date: 20251020
  Serious: No
  Sender: RISING PHARMACEUTICALS
  Company Number: US-RISINGPHARMA-US-2025RISSPO00230

PATIENT
  Age: 69 Year
  Sex: Female
  Weight: 52.16 kg

DRUGS (1)
  1. GABAPENTIN [Suspect]
     Active Substance: GABAPENTIN
     Indication: Pain management
     Route: 048
     Dates: start: 20250411, end: 20250501

REACTIONS (2)
  - Insomnia [Recovered/Resolved]
  - Drug ineffective [Unknown]

NARRATIVE: CASE EVENT DATE: 20250101
